FAERS Safety Report 10566884 (Version 1)
Quarter: 2014Q4

REPORT INFORMATION
  Report Type: Spontaneous
  Country: US (occurrence: US)
  Receive Date: 20141105
  Receipt Date: 20141105
  Transmission Date: 20150529
  Serious: Yes (Hospitalization, Other)
  Sender: FDA-Public Use
  Company Number: US-TEVA-519163USA

PATIENT
  Age: 53 Year
  Sex: Male

DRUGS (5)
  1. LEVOFLOXACIN TABLETS, 250 MG, 500 MG AND 750 MG [Suspect]
     Active Substance: LEVOFLOXACIN
     Dosage: 2002 OR 2009
  2. MOXIFLOXACIN [Suspect]
     Active Substance: MOXIFLOXACIN
     Route: 065
  3. LEVAQUIN [Suspect]
     Active Substance: LEVOFLOXACIN
     Dosage: 2002 OR 2009
  4. LEVAQUIN [Suspect]
     Active Substance: LEVOFLOXACIN
     Dosage: 2002 OR 2009
     Route: 065
  5. LEVOFLOXACIN TABLETS, 250 MG, 500 MG AND 750 MG [Suspect]
     Active Substance: LEVOFLOXACIN
     Dosage: 2002 OR 2009
     Route: 065

REACTIONS (10)
  - Cardiac failure [Recovering/Resolving]
  - Nerve injury [Not Recovered/Not Resolved]
  - Paraesthesia [Unknown]
  - Pneumothorax [Recovering/Resolving]
  - Apparent death [Recovering/Resolving]
  - Paraesthesia [Unknown]
  - Pain in extremity [Unknown]
  - Renal failure [Recovering/Resolving]
  - Deafness [Unknown]
  - Muscular weakness [Not Recovered/Not Resolved]

NARRATIVE: CASE EVENT DATE: 2014
